FAERS Safety Report 13142102 (Version 1)
Quarter: 2017Q1

REPORT INFORMATION
  Report Type: Spontaneous
  Country: NL (occurrence: NL)
  Receive Date: 20170124
  Receipt Date: 20170124
  Transmission Date: 20170428
  Serious: Yes (Life-Threatening)
  Sender: FDA-Public Use
  Company Number: NL-PFIZER INC-2017028734

PATIENT
  Age: 79 Year
  Sex: Male

DRUGS (2)
  1. AVODART [Concomitant]
     Active Substance: DUTASTERIDE
     Dosage: UNK
     Dates: start: 201504
  2. AMIODARONE HCL [Suspect]
     Active Substance: AMIODARONE HYDROCHLORIDE
     Indication: ARRHYTHMIA
     Dosage: 0.5 DF, DAILY
     Route: 048
     Dates: start: 201510, end: 20161213

REACTIONS (4)
  - Fall [Recovering/Resolving]
  - Dizziness [Recovering/Resolving]
  - Vestibular disorder [Recovering/Resolving]
  - Coma [Recovering/Resolving]

NARRATIVE: CASE EVENT DATE: 20161212
